FAERS Safety Report 23905687 (Version 1)
Quarter: 2024Q2

REPORT INFORMATION
  Report Type: Spontaneous
  Country: JP (occurrence: JP)
  Receive Date: 20240527
  Receipt Date: 20240527
  Transmission Date: 20240716
  Serious: Yes (Hospitalization, Other)
  Sender: FDA-Public Use
  Company Number: JP-PFIZER INC-PV202400067463

PATIENT
  Age: 71 Year
  Sex: Male

DRUGS (1)
  1. TAFAMIDIS [Suspect]
     Active Substance: TAFAMIDIS
     Indication: Cardiac amyloidosis
     Dosage: UNK
     Route: 048

REACTIONS (5)
  - Syncope [Unknown]
  - Low cardiac output syndrome [Unknown]
  - Oliguria [Unknown]
  - Atrial fibrillation [Unknown]
  - Hypothyroidism [Unknown]
